FAERS Safety Report 7597457-4 (Version None)
Quarter: 2011Q3

REPORT INFORMATION
  Report Type: 
  Country: None (occurrence: None)
  Receive Date: 20110708
  Receipt Date: 20110628
  Transmission Date: 20111222
  Serious: Yes (Hospitalization, Other)
  Sender: FDA-Public Use
  Company Number: PHHY2011FR30802

PATIENT
  Sex: Female
  Weight: 60 kg

DRUGS (150)
  1. COMTAN [Suspect]
     Indication: PARKINSON'S DISEASE
     Dosage: 1 DF, (1 TAB IN MORNING)
     Route: 048
     Dates: start: 20050123, end: 20050301
  2. COMTAN [Suspect]
     Dosage: 0.5 TABLET 5 TIMES PER DAY
     Route: 048
     Dates: start: 20060629
  3. MODOPAR [Suspect]
     Dosage: 125 MG, BID (1 IN THE MORNING, 1 IN THE EVENING)
     Dates: start: 20090302
  4. MODOPAR [Suspect]
     Dosage: 125 MG, 1 TAB IN EVENING
     Dates: start: 20090927
  5. MODOPAR [Suspect]
     Dosage: 250 MG AT 1 CAPSULE 3 TIMES PER DAY, MODOPAR 125 MG AT 1 TABLET IN THE MORNING, MODOPAR 62.5
     Dates: start: 20060622
  6. MODOPAR [Suspect]
     Dosage: 62.5 MG 5 TIMES PER DAY
     Dates: start: 20090505
  7. MODOPAR [Suspect]
     Dosage: 125 MG 4 TIMES PER DAY
     Route: 048
     Dates: start: 20080625
  8. MODOPAR [Suspect]
     Dosage: 125 MG AT 1 TABLET DAILY, MODOPAR 62.5 MG,
     Dates: start: 20081029
  9. PERGOLIDE MESYLATE [Suspect]
     Dosage: 1 MG, TID
     Dates: start: 20041021
  10. EFFEXOR [Concomitant]
     Dosage: 50 MG, QD
     Dates: start: 20080105
  11. EFFEXOR [Concomitant]
     Dosage: 50 MG, BID
     Dates: start: 20020219
  12. ATHYMIL [Concomitant]
     Dosage: 30 MG, QD
     Dates: start: 20080130
  13. LOXAPINE HCL [Concomitant]
     Dosage: 15 DRP, TID
     Dates: start: 20080130
  14. ECONAZOLE NITRATE [Concomitant]
     Dosage: UNK UKN, UNK
     Dates: start: 20060918
  15. ATARAX [Concomitant]
     Dosage: 25 MG, UNK
     Dates: start: 20090209
  16. ATARAX [Concomitant]
     Dosage: 5 DF, UNK
     Dates: start: 20090406
  17. ELUDRIL [Concomitant]
  18. STALEVO 100 [Suspect]
     Dosage: 5 DF, (5 TABS PER DAY0
     Dates: start: 20090216
  19. MODOPAR [Suspect]
     Dosage: 0.5 DF, FIVE TIME DAILY
     Dates: start: 20070830
  20. MODOPAR [Suspect]
     Dosage: 250 MG, BID, 62.5 MG BID
     Dates: start: 20020322
  21. MODOPAR [Suspect]
     Dosage: 250 MG, UNK
     Dates: start: 20030905
  22. MODOPAR [Suspect]
     Dosage: 250 MG, TID 62.5 MG 1 TAB/DAY
     Dates: start: 20040901
  23. MODOPAR [Suspect]
     Dosage: 250 MG, TID 62.5 MG 1 TAB/DAY
     Dates: start: 20041214
  24. PRAMIPEXOLE DIHYDROCHLORIDE [Suspect]
     Dosage: 0.7 MG, TID
     Dates: start: 20060622
  25. EFFEXOR [Concomitant]
     Dosage: 50 MG, QD
     Dates: start: 20060622
  26. EFFEXOR [Concomitant]
     Dosage: 50 MG, UNK
     Dates: start: 20081029
  27. EFFEXOR [Concomitant]
     Dosage: 50 MG, BID
     Dates: start: 20020813
  28. XANAX [Concomitant]
     Dosage: 0.5 MG, TID
     Dates: start: 20040925
  29. IMOVANE [Concomitant]
     Dosage: 2 DF, QHS
     Dates: start: 20020219
  30. IMOVANE [Concomitant]
     Dosage: 1 DF, BID
     Dates: start: 20020322
  31. ATHYMIL [Concomitant]
     Dosage: 30 MG, UNK
     Dates: start: 20091219
  32. ATARAX [Concomitant]
     Dosage: 5 DF, UNK
     Dates: start: 20090415
  33. ADEPAL [Concomitant]
  34. INTETRIX [Concomitant]
     Dosage: 4 DF, UNK
  35. STALEVO 100 [Suspect]
     Dosage: 6 DF, PER DAY
     Dates: start: 20100302
  36. STALEVO 100 [Suspect]
     Dosage: 5 DF, (5 TABS PER DAY0
     Dates: start: 20080827
  37. MODOPAR [Suspect]
     Dosage: 125 MG, 1 TAB PER DAY
     Dates: start: 20090725
  38. MODOPAR [Suspect]
     Dosage: UNK UKN, UNK
     Dates: start: 19950101
  39. MODOPAR [Suspect]
     Dosage: 250 MG AT 1 CAPSULE 3 TIMES PER DAY
     Dates: start: 20071205
  40. MODOPAR [Suspect]
     Dosage: 125 MG AT 1 TABLET 2 TO 3 TIMES PER DAY, MODOPAR 62.5 MG AT 1 TABLET 4 TIMES PER
     Route: 048
  41. MODOPAR [Suspect]
     Dosage: 62.5 MG, 4 TABS/DAY
     Dates: start: 20080715
  42. MODOPAR [Suspect]
     Dosage: 62.5 MG, 5 TABS/DAY
     Dates: start: 20090101
  43. PERGOLIDE MESYLATE [Suspect]
     Dosage: UNK UKN, UNK
     Dates: start: 20030201
  44. XANAX [Concomitant]
     Dosage: 0.5 MG, TID
     Dates: start: 20050331
  45. XANAX [Concomitant]
     Dosage: 0.5 MG, 5 TAB/DAY
     Dates: start: 20090602
  46. XANAX [Concomitant]
     Dosage: 0.25 MG, TID
     Dates: start: 20030905
  47. IMOVANE [Concomitant]
     Dosage: 1 DF, BID
     Dates: start: 20020813
  48. ATHYMIL [Concomitant]
     Dosage: 30 MG, UNK
     Dates: start: 20090512
  49. ACETAMINOPHEN [Concomitant]
     Dosage: 500 MG, UNK
     Dates: start: 20090602
  50. GAVISCON                                /GFR/ [Concomitant]
     Dosage: UNK UKN, UNK
     Dates: start: 20040915
  51. ZOLOFT [Concomitant]
     Dosage: 50 MG, BID
     Dates: start: 20040915
  52. COMTAN [Suspect]
     Dosage: 0.5 TABLET 3 TIMES PER DAY
     Route: 048
     Dates: start: 20071205
  53. STALEVO 100 [Suspect]
     Dosage: 5 DF, 5 TAB/DAY
     Dates: start: 20090725
  54. STALEVO 100 [Suspect]
     Dosage: 5 DF, 5 TAB/DAY
     Dates: start: 20091102
  55. STALEVO 100 [Suspect]
     Dosage: 5 DF,PER DAY
     Dates: start: 20091219
  56. STALEVO 100 [Suspect]
     Dosage: 5 DF, (5 TABS PER DAY0
     Dates: start: 20090105
  57. MODOPAR [Suspect]
     Dosage: 125 MG, 1 TAB IN EVENING
     Dates: start: 20091102
  58. MODOPAR [Suspect]
     Dosage: SCATTERED TAB BID, MODOPAR 62.5, 5 TABS/DAY
     Dates: start: 20090725
  59. MODOPAR [Suspect]
     Dosage: 125 MG TAB IN EVENING, 62.5 MG 5 TAB/DAY
     Dates: start: 20090917
  60. MODOPAR [Suspect]
     Dosage: 62.5 MG, 5 TABS/DAY
     Dates: start: 20081115
  61. PERGOLIDE MESYLATE [Suspect]
     Dosage: 0.5 MG, TID
     Dates: start: 20030905
  62. EFFEXOR [Concomitant]
     Dosage: 75 MG, UNK
     Dates: start: 20090602
  63. EFFEXOR [Concomitant]
     Dosage: 75 MG, BID
     Dates: start: 20090917
  64. EFFEXOR [Concomitant]
     Dosage: 75 MG, BID
     Dates: start: 20091019
  65. EFFEXOR [Concomitant]
     Dosage: 50 MG, BID
     Dates: start: 20020222
  66. EFFEXOR [Concomitant]
     Dosage: 50 MG, BID
     Dates: start: 20040915
  67. EFFEXOR [Concomitant]
     Dosage: 75 MG, BID
     Dates: start: 20081125
  68. XANAX [Concomitant]
     Dosage: 0.5 MG, TID
     Dates: start: 20050123
  69. ACETAMINOPHEN AND TRAMADOL HCL [Concomitant]
     Dosage: 1 DF, TID
     Dates: start: 20060622
  70. ACETAMINOPHEN AND TRAMADOL HCL [Concomitant]
     Dosage: 1 DF, QD
     Dates: start: 20080105
  71. IMOVANE [Concomitant]
     Dosage: 7.5 MG, QHS
  72. IMOVANE [Concomitant]
     Dosage: 1 DF, UNK
     Dates: start: 20080715
  73. ATHYMIL [Concomitant]
     Dosage: 10 MG, 5 TAB PER DAY
     Dates: start: 20090205
  74. ATHYMIL [Concomitant]
     Dosage: 30 MG, UNK
     Dates: start: 20091112
  75. NECYRANE [Concomitant]
     Dosage: UNK UKN, UNK
     Dates: start: 20060313
  76. DEPAKOTE [Concomitant]
     Dosage: 250 MG, (2 IN MORNING, 2 IN EVENING)
     Dates: start: 20090519
  77. AMOXICILLIN [Concomitant]
     Dosage: 1 G, BID
     Dates: start: 20041117
  78. COMTAN [Suspect]
     Dosage: 0.5 TABLET FIVE TIMES PER DAY
     Route: 048
     Dates: start: 20080105
  79. STALEVO 100 [Suspect]
     Dosage: 1 TABLET 5 TIMES PER DAY
     Route: 048
     Dates: start: 20080530
  80. STALEVO 100 [Suspect]
     Dosage: 5 DF, (5 TABS PER DAY0
     Dates: start: 20081212
  81. MODOPAR [Suspect]
     Dosage: 125 MG,1/DAY PLUS 1 IF NEEDED, 62.5 MG, 5 TABS/DAY
     Dates: start: 20090406
  82. MODOPAR [Suspect]
     Dosage: 125 MG, UNK
     Dates: start: 20100727
  83. MODOPAR [Suspect]
     Dosage: 62.5 MG AT 1 CAPSULE 4 TIMES PER DAY
     Dates: start: 20080304
  84. MODOPAR [Suspect]
     Dosage: 125 MG ONCE PER DAY, MODOPAR 62.5 MG AT 5 TIMES PER DAY
     Dates: start: 20080915
  85. EFFEXOR [Concomitant]
     Dosage: 50 MG, TID
     Dates: start: 20050331
  86. EFFEXOR [Concomitant]
     Dosage: 75 MG, BID
     Dates: start: 20080625
  87. EFFEXOR [Concomitant]
     Dosage: 75 MG, BID
     Dates: start: 20090818
  88. XANAX [Concomitant]
     Dosage: 0.25 MG, TID
     Dates: start: 20080130
  89. XANAX [Concomitant]
     Dosage: 0.5 MG, UNK
     Dates: start: 20080530
  90. XANAX [Concomitant]
     Dosage: 0.5 MG, TID
     Dates: start: 20080625
  91. XANAX [Concomitant]
     Dosage: 0.5 MG, 5 TAB/DAY
     Dates: start: 20090406
  92. XANAX [Concomitant]
     Dosage: 0.5 MG, 5 TAB/DAY
     Dates: start: 20091019
  93. ATHYMIL [Concomitant]
     Dosage: 50 MG, UNK
     Dates: start: 20090725
  94. LYSOPAINE [Concomitant]
  95. CARBOCISTEINE [Concomitant]
  96. KETOCONAZOLE [Concomitant]
     Dosage: UNK UKN, UNK
     Dates: start: 20060918
  97. LORAZEPAM [Concomitant]
     Dosage: 2.5 MG, UNK
     Dates: start: 20090209
  98. DEPAKOTE [Concomitant]
     Dosage: 250 MG, BID
     Dates: start: 20090512
  99. PRAZEPAM [Concomitant]
     Dosage: 10 MG, UNK
     Dates: start: 20090803
  100. HEPTAMINOL [Concomitant]
     Dosage: 30 DRP, TID
     Dates: start: 20030408
  101. STALEVO 100 [Suspect]
     Dosage: 1 DF, QID
     Route: 048
     Dates: start: 20080304
  102. STALEVO 100 [Suspect]
     Dosage: 5 DF, 5 TAB/DAY
     Dates: start: 20091019
  103. MODOPAR [Suspect]
     Dosage: 125 MG, 1 TAB PER DAY
     Dates: start: 20090818
  104. MODOPAR [Suspect]
     Dosage: 125 MG TWICE PER DAY, MODOPAR 62.5 MG AT 1 CAPSULE 4 TIMES PER DAY DAILY
     Dates: start: 20080206
  105. MODOPAR [Suspect]
     Dosage: 125 MG 1 TO 3 TIMES PER DAYUNK
     Route: 048
     Dates: start: 20080304
  106. MODOPAR [Suspect]
     Dosage: 250 MG, TID, 62.5 MG 1 TABLET MID DAY
     Dates: start: 20020219
  107. MODOPAR [Suspect]
     Dosage: 250 MG, BID 62.5 MGG 1TAB/DAY
     Dates: start: 20020813
  108. MODOPAR [Suspect]
     Dosage: 62.5 MG, 5 TABS/DAY
     Dates: start: 20090216
  109. EFFEXOR [Concomitant]
     Dosage: 75 MG, BID
     Dates: start: 20110406
  110. XANAX [Concomitant]
     Dosage: 0.5 MG, QID
  111. XANAX [Concomitant]
     Dosage: 0.5 MG, 5 TABS/DAY
     Dates: start: 20090512
  112. XANAX [Concomitant]
     Dosage: 0.5 MG, 5 TAB/DAY
     Dates: start: 20090725
  113. XANAX [Concomitant]
     Dosage: 0.25 MG, TID
     Dates: start: 20020813
  114. XANAX [Concomitant]
     Dosage: 0.25 MG,4 T/DAY
     Dates: start: 20040728
  115. XANAX [Concomitant]
     Dosage: 0.25 MG, HALF TABLET 5 TIMES A DAY
     Dates: start: 20080715
  116. ATHYMIL [Concomitant]
     Dosage: 30 MG, UNK
     Dates: start: 20090917
  117. ATARAX [Concomitant]
     Dosage: 25 MG, TID
     Dates: start: 20080125
  118. CEFUROXIME [Concomitant]
     Dosage: 250 MG, BID
  119. STILNOX                                 /FRA/ [Concomitant]
     Dosage: 1 DF, UNK
     Dates: start: 20040915
  120. STALEVO 100 [Suspect]
     Dosage: 5 DF, 5 TABLETS PER DAY
     Dates: start: 20090415
  121. STALEVO 100 [Suspect]
     Dosage: 5 DF, 5 TAB/DAY
     Dates: start: 20090818
  122. STALEVO 100 [Suspect]
     Dosage: UNK UKN, UNK
     Dates: end: 20101101
  123. MODOPAR [Suspect]
     Dosage: 125 MG, 1 TAB IN EVENING
     Dates: start: 20090602
  124. MODOPAR [Suspect]
     Dosage: 250 MG AT 1 CAPSULE 5 TIMES PER DAY
     Dates: start: 20070109
  125. MODOPAR [Suspect]
     Dosage: 4 TIMES PER DAY
     Route: 048
     Dates: start: 20080530
  126. MODOPAR [Suspect]
     Dosage: 125 MG TAB IN EVENING, 62.5 MG 5 TABS PER DAY
     Dates: start: 20091102
  127. MODOPAR [Suspect]
     Dosage: 125 MG ONE SCATTERED TAB PER DAY, 62.5 MG 3 TAB/DAY
     Dates: start: 20100302
  128. EFFEXOR [Concomitant]
     Dosage: 37.5 MG, TID
     Dates: start: 20070109
  129. EFFEXOR [Concomitant]
     Dosage: 50 MG, BID
     Dates: start: 20080130
  130. XANAX [Concomitant]
     Dosage: 0.5 MG, 5/ DAY
     Dates: start: 20090205
  131. XANAX [Concomitant]
     Dosage: 0.5 MG, TID
     Dates: start: 20041104
  132. ACETAMINOPHEN [Concomitant]
     Dosage: 1000 MG, TID
     Dates: start: 20041214
  133. ATARAX [Concomitant]
     Dosage: 4 DF, UNK
     Dates: start: 20090602
  134. DEPAKOTE [Concomitant]
     Dosage: 500 MG, BID
     Dates: start: 20091019
  135. STALEVO 100 [Suspect]
     Indication: PARKINSON'S DISEASE
     Dosage: 1 TABLET 5 TIMES PER DAY
     Route: 048
  136. MODOPAR [Suspect]
     Indication: PARKINSON'S DISEASE
     Dosage: 125 MG, QD
  137. MODOPAR [Suspect]
     Dosage: 125 MG, UNK
     Dates: start: 20090430
  138. MODOPAR [Suspect]
     Dosage: 250 MG AT 1 CAPSULE 3 TIMES PER DAY, MODOPAR 125 MG AT 1 TABLET IN THE MORNING, MODOPAR 62.5
     Dates: start: 20070510
  139. MODOPAR [Suspect]
     Dosage: 62.5 MG AT 4 TIMES PER DAY
     Dates: start: 20080530
  140. MODOPAR [Suspect]
     Dosage: 250 MG, TID
     Dates: start: 20020219
  141. MODOPAR [Suspect]
     Dosage: 125 MG SCATTERED TAB IF NEEDED, 62.5 MG 5 TABS/D
     Dates: start: 20090818
  142. MODOPAR [Suspect]
     Dosage: 250 MG, TID
     Dates: start: 20041104
  143. PERGOLIDE MESYLATE [Suspect]
     Dosage: 1 MG, UNK
     Dates: start: 20050123
  144. EFFEXOR [Concomitant]
     Dosage: 75 MG, TID
     Dates: start: 20090209
  145. EFFEXOR [Concomitant]
     Dosage: UNK UKN, UNK
     Dates: start: 20030905
  146. EFFEXOR [Concomitant]
     Dosage: 50 MG, 5 TABS/ DAY
     Dates: start: 20080715
  147. XANAX [Concomitant]
     Dosage: 0.25 MG, TID
     Dates: start: 20020322
  148. XANAX [Concomitant]
     Dosage: 0.5 MG, TID
     Dates: start: 20041214
  149. ATHYMIL [Concomitant]
     Dosage: 30 MG, UNK
     Dates: start: 20090602
  150. IBUPROFEN [Concomitant]
     Dosage: 400 MG, UNK

REACTIONS (26)
  - THYMUS DISORDER [None]
  - TREMOR [None]
  - WEIGHT INCREASED [None]
  - PSYCHOTIC BEHAVIOUR [None]
  - FALL [None]
  - BALANCE DISORDER [None]
  - C-REACTIVE PROTEIN INCREASED [None]
  - ABNORMAL BEHAVIOUR [None]
  - SUICIDE ATTEMPT [None]
  - DYSPNOEA [None]
  - CHROMATURIA [None]
  - SUICIDAL IDEATION [None]
  - DEPRESSED MOOD [None]
  - CORNEAL REFLEX DECREASED [None]
  - RED BLOOD CELL SEDIMENTATION RATE INCREASED [None]
  - AMIMIA [None]
  - COMPULSIVE SHOPPING [None]
  - MUSCULOSKELETAL PAIN [None]
  - BACK PAIN [None]
  - PSYCHOMOTOR HYPERACTIVITY [None]
  - HYPOMANIA [None]
  - DEPRESSION [None]
  - AKINESIA [None]
  - MUSCLE RIGIDITY [None]
  - NECK PAIN [None]
  - MUSCLE SPASMS [None]
